FAERS Safety Report 8601157-9 (Version None)
Quarter: 2012Q3

REPORT INFORMATION
  Report Type: 
  Country: None (occurrence: None)
  Receive Date: 20120817
  Receipt Date: 20120816
  Transmission Date: 20120928
  Serious: Yes (Death)
  Sender: FDA-Public Use
  Company Number: PHHY2012AU070894

PATIENT
  Sex: Female

DRUGS (3)
  1. ZOLEDRONOC ACID [Suspect]
     Route: 042
     Dates: start: 20090617
  2. ZOLEDRONOC ACID [Suspect]
     Route: 042
     Dates: start: 20100512
  3. ZOLEDRONOC ACID [Suspect]
     Route: 042
     Dates: start: 20110707

REACTIONS (1)
  - DEATH [None]
